FAERS Safety Report 16261863 (Version 1)
Quarter: 2019Q2

REPORT INFORMATION
  Report Type: Spontaneous
  Country: US (occurrence: US)
  Receive Date: 20190501
  Receipt Date: 20190501
  Transmission Date: 20190711
  Serious: No
  Sender: FDA-Public Use
  Company Number: US-PFIZER INC-2019186801

PATIENT
  Age: 63 Year
  Sex: Male
  Weight: 137 kg

DRUGS (1)
  1. LYRICA [Suspect]
     Active Substance: PREGABALIN
     Indication: NEURALGIA
     Dosage: 50 MG, 2X/DAY (ONE IN THE MORNING AND ONE IN THE EVENING)
     Route: 048

REACTIONS (4)
  - Arthralgia [Unknown]
  - Back pain [Unknown]
  - Paraesthesia [Unknown]
  - Arthritis [Unknown]
